FAERS Safety Report 9217978 (Version 4)
Quarter: 2013Q4

REPORT INFORMATION
  Report Type: Spontaneous
  Country: US (occurrence: US)
  Receive Date: 20130408
  Receipt Date: 20131104
  Transmission Date: 20140711
  Serious: Yes (Other)
  Sender: FDA-Public Use
  Company Number: US-PFIZER INC-2013109468

PATIENT
  Age: 57 Year
  Sex: Female
  Weight: 86.17 kg

DRUGS (3)
  1. LYRICA [Suspect]
     Indication: FIBROMYALGIA
     Dosage: 75 MG, (TWO CAPSULES) 2X/DAY
     Dates: start: 2006, end: 201304
  2. LYRICA [Suspect]
     Indication: PAIN
  3. CYMBALTA [Concomitant]
     Indication: OSTEOARTHRITIS
     Dosage: 60 MG, DAILY

REACTIONS (9)
  - Gait disturbance [Unknown]
  - Bedridden [Unknown]
  - Cardiac disorder [Unknown]
  - Arthropathy [Unknown]
  - Pain [Unknown]
  - General physical health deterioration [Unknown]
  - Depression [Unknown]
  - Fibromyalgia [Unknown]
  - Anxiety [Unknown]
